FAERS Safety Report 8621862-8 (Version None)
Quarter: 2012Q3

REPORT INFORMATION
  Report Type: 
  Country: None (occurrence: None)
  Receive Date: 20120822
  Receipt Date: 20120822
  Transmission Date: 20120928
  Serious: Yes (Hospitalization)
  Sender: FDA-Public Use
  Company Number: None

PATIENT
  Age: 49 Year
  Sex: Male
  Weight: 125.3 kg

DRUGS (1)
  1. SULFAMETHOXAZOLE AND TRIMETHOPRIM [Suspect]
     Indication: URINARY TRACT INFECTION
     Dosage: MG BID PO
     Route: 048
     Dates: start: 20120711, end: 20120814

REACTIONS (5)
  - MYALGIA [None]
  - ABDOMINAL PAIN [None]
  - FATIGUE [None]
  - DECREASED APPETITE [None]
  - HEPATITIS [None]
